FAERS Safety Report 8684523 (Version 2)
Quarter: 2012Q4

REPORT INFORMATION
  Report Type: 
  Country: AR (occurrence: AR)
  Receive Date: 20120726
  Receipt Date: 20120927
  Transmission Date: 20130627
  Serious: Yes (Other)
  Sender: FDA-Public Use
  Company Number: AR-ROCHE-1090994

PATIENT
  Age: 68 None
  Sex: Female

DRUGS (4)
  1. LUCENTIS [Suspect]
     Indication: RETINAL VASCULAR THROMBOSIS
     Route: 050
     Dates: start: 2010
  2. LUCENTIS [Suspect]
     Route: 050
     Dates: start: 2011
  3. LUCENTIS [Suspect]
     Route: 050
  4. LUCENTIS [Suspect]
     Route: 050

REACTIONS (4)
  - Intraocular pressure increased [Recovering/Resolving]
  - Vision blurred [Recovering/Resolving]
  - Scotoma [Recovering/Resolving]
  - No therapeutic response [Unknown]
